FAERS Safety Report 16066636 (Version 4)
Quarter: 2019Q2

REPORT INFORMATION
  Report Type: Report from Study
  Country: BE (occurrence: BE)
  Receive Date: 20190313
  Receipt Date: 20190625
  Transmission Date: 20190711
  Serious: Yes (Hospitalization)
  Sender: FDA-Public Use
  Company Number: PHHO2019BE002824

PATIENT
  Age: 54 Year
  Sex: Female
  Weight: 60 kg

DRUGS (16)
  1. INNOHEP [Concomitant]
     Active Substance: TINZAPARIN SODIUM
     Indication: THROMBOSIS
     Dosage: 1000 U
     Route: 058
     Dates: start: 20190221
  2. AMN107 [Suspect]
     Active Substance: NILOTINIB
     Indication: ACUTE LYMPHOCYTIC LEUKAEMIA
     Dosage: 400 MG
     Route: 048
     Dates: start: 20190121, end: 20190217
  3. BEFACT FORTE [Concomitant]
     Indication: PRODUCT USED FOR UNKNOWN INDICATION
     Dosage: UNK
     Route: 048
     Dates: start: 20190204
  4. ZANTAC [Concomitant]
     Active Substance: RANITIDINE HYDROCHLORIDE
     Indication: PROPHYLAXIS AGAINST GASTROINTESTINAL ULCER
     Dosage: 300 MG
     Route: 048
     Dates: start: 20190221
  5. ACICLOVIR [Concomitant]
     Active Substance: ACYCLOVIR
     Indication: INFECTION PROPHYLAXIS
     Dosage: 1200 MG
     Route: 048
     Dates: start: 20190201
  6. METHOTREXATE. [Concomitant]
     Active Substance: METHOTREXATE
     Dosage: 15 MG
     Route: 042
     Dates: start: 20190315, end: 20190315
  7. AMN107 [Suspect]
     Active Substance: NILOTINIB
     Dosage: 800 MG
     Route: 048
     Dates: start: 20190218, end: 20190228
  8. AMN107 [Suspect]
     Active Substance: NILOTINIB
     Dosage: 400 MG
     Route: 048
     Dates: start: 20190311, end: 20190404
  9. VINCRISTINE [Suspect]
     Active Substance: VINCRISTINE
     Dosage: 1 MG
     Route: 042
     Dates: start: 20190211, end: 20190211
  10. G-CSF [Concomitant]
     Active Substance: GRANULOCYTE COLONY-STIMULATING FACTOR NOS
     Indication: CHEMOTHERAPY
     Dosage: 300 UG
     Route: 042
     Dates: start: 20190204, end: 20190217
  11. DEXAMETHASONE. [Suspect]
     Active Substance: DEXAMETHASONE
     Indication: CHEMOTHERAPY
     Dosage: 40 MG
     Route: 048
     Dates: start: 20190121, end: 20190212
  12. VINCRISTINE [Suspect]
     Active Substance: VINCRISTINE
     Indication: CHEMOTHERAPY
     Dosage: 2 MG
     Route: 042
     Dates: start: 20190121, end: 20190128
  13. L THYROXINE [Concomitant]
     Active Substance: LEVOTHYROXINE SODIUM
     Indication: HYPOTHYROIDISM
     Dosage: 75 UG
     Route: 048
     Dates: start: 1990
  14. METHOTREXATE. [Concomitant]
     Active Substance: METHOTREXATE
     Indication: CHEMOTHERAPY
     Dosage: 1650 MG
     Route: 042
     Dates: start: 20190307, end: 20190310
  15. CYTARABINE. [Concomitant]
     Active Substance: CYTARABINE
     Indication: CHEMOTHERAPY
     Dosage: 5 G
     Route: 042
     Dates: start: 20190308, end: 20190309
  16. CYTARABINE. [Concomitant]
     Active Substance: CYTARABINE
     Dosage: 40 MG
     Route: 042
     Dates: start: 20190315, end: 20190315

REACTIONS (3)
  - Hepatic enzyme increased [Recovering/Resolving]
  - Lipase increased [Recovered/Resolved]
  - Influenza [Recovered/Resolved]

NARRATIVE: CASE EVENT DATE: 20190221
